FAERS Safety Report 12386983 (Version 2)
Quarter: 2016Q2

REPORT INFORMATION
  Report Type: Spontaneous
  Country: US (occurrence: US)
  Receive Date: 20160519
  Receipt Date: 20160531
  Transmission Date: 20160815
  Serious: Yes (Other)
  Sender: FDA-Public Use
  Company Number: US-LUNDBECK-DKLU2013930

PATIENT
  Age: 55 Year
  Sex: Female

DRUGS (2)
  1. MIDODRINE [Concomitant]
     Active Substance: MIDODRINE
     Indication: PRODUCT USED FOR UNKNOWN INDICATION
     Route: 065
  2. NORTHERA [Suspect]
     Active Substance: DROXIDOPA
     Indication: PRODUCT USED FOR UNKNOWN INDICATION
     Dosage: OPTION C SCHEDULE
     Route: 065
     Dates: start: 20160418, end: 20160505

REACTIONS (8)
  - Dyspnoea [Unknown]
  - Asthenia [Unknown]
  - Headache [Recovered/Resolved]
  - Facial paralysis [Recovered/Resolved]
  - Blood pressure fluctuation [Recovered/Resolved]
  - Hyperhidrosis [Unknown]
  - Dyspnoea exertional [Unknown]
  - Blood pressure increased [Recovered/Resolved]

NARRATIVE: CASE EVENT DATE: 20160425
